FAERS Safety Report 23322346 (Version 1)
Quarter: 2023Q4

REPORT INFORMATION
  Report Type: Spontaneous
  Country: US (occurrence: None)
  Receive Date: 20231220
  Receipt Date: 20231220
  Transmission Date: 20240109
  Serious: Yes (unspecified)
  Sender: FDA-Public Use
  Company Number: None

PATIENT
  Age: 59 Year
  Sex: Male
  Weight: 119.5 kg

DRUGS (6)
  1. VANCOMYCIN HYDROCHLORIDE [Suspect]
     Active Substance: VANCOMYCIN HYDROCHLORIDE
     Indication: Diabetic foot infection
     Dosage: 1750 MG  ONCE INTRAVENOUS DRIP?
     Route: 041
     Dates: start: 20230628, end: 20230628
  2. METRONIDAZOLE [Suspect]
     Active Substance: METRONIDAZOLE
     Dates: start: 20230627, end: 20230630
  3. CEFEPIME [Suspect]
     Active Substance: CEFEPIME HYDROCHLORIDE
     Dates: start: 20230627, end: 20230628
  4. CEFTRIAXONE [Suspect]
     Active Substance: CEFTRIAXONE\CEFTRIAXONE SODIUM
     Dates: start: 20230628, end: 20230704
  5. DOXYCYCLINE [Suspect]
     Active Substance: DOXYCYCLINE
  6. DAPTOMYCIN [Suspect]
     Active Substance: DAPTOMYCIN

REACTIONS (7)
  - Infection [None]
  - Staphylococcal infection [None]
  - Pseudomonas infection [None]
  - Contraindicated product administered [None]
  - Hypersensitivity [None]
  - Anaphylactic reaction [None]
  - Documented hypersensitivity to administered product [None]

NARRATIVE: CASE EVENT DATE: 20230628
